FAERS Safety Report 20908594 (Version 1)
Quarter: 2022Q2

REPORT INFORMATION
  Report Type: Spontaneous
  Country: FR (occurrence: FR)
  Receive Date: 20220603
  Receipt Date: 20220603
  Transmission Date: 20220720
  Serious: Yes (Hospitalization)
  Sender: FDA-Public Use
  Company Number: None

PATIENT
  Age: 29 Year
  Sex: Male
  Weight: 105 kg

DRUGS (3)
  1. ALPRAZOLAM [Suspect]
     Active Substance: ALPRAZOLAM
     Indication: Anxiety
     Dosage: 1 MILLIGRAM DAILY; ALPRAZOLAM 0,25 MG 1-1-2, UNIT DOSE: 1 MG, FREQUENCY: 1 DAYS
     Route: 048
     Dates: start: 20220424
  2. LOXAPINE [Suspect]
     Active Substance: LOXAPINE
     Route: 042
     Dates: start: 20220427, end: 20220427
  3. SARS-COV-2 SPIKE GLYCOPROTEIN VACCINE ANTIGEN NVX-COV2373 [Suspect]
     Active Substance: SARS-COV-2 SPIKE GLYCOPROTEIN VACCINE ANTIGEN NVX-COV2373
     Indication: COVID-19 immunisation
     Dosage: DISPERSION FOR INJECTION VACCINE AGAINST COVID-19 (RECOMBINANT, WITH ADJUVANT) VIAL (GLASS)  5 ML (1
     Route: 030
     Dates: start: 20220405

REACTIONS (1)
  - Pulmonary embolism [Recovered/Resolved]

NARRATIVE: CASE EVENT DATE: 20220428
